FAERS Safety Report 15775119 (Version 2)
Quarter: 2019Q1

REPORT INFORMATION
  Report Type: Spontaneous
  Country: AT (occurrence: AT)
  Receive Date: 20181231
  Receipt Date: 20190108
  Transmission Date: 20190417
  Serious: Yes (Other)
  Sender: FDA-Public Use
  Company Number: AT-009507513-1812AUT012043

PATIENT
  Age: 55 Year
  Sex: Female

DRUGS (4)
  1. KEYTRUDA [Suspect]
     Active Substance: PEMBROLIZUMAB
     Indication: PRODUCT USED FOR UNKNOWN INDICATION
     Dosage: UNK
     Route: 065
  2. CISPLATIN EBEWE [Suspect]
     Active Substance: CISPLATIN
     Indication: TRANSITIONAL CELL CARCINOMA
     Dosage: 70 MILLIGRAM/SQ. METER, UNK
     Route: 065
     Dates: start: 20170625, end: 20170828
  3. GEMCITABINE [Suspect]
     Active Substance: GEMCITABINE\GEMCITABINE HYDROCHLORIDE
     Indication: TRANSITIONAL CELL CARCINOMA
     Dosage: 1000 MILLIGRAM/SQ. METER, UNK
     Route: 065
     Dates: start: 20170625
  4. JAVLOR (VINFLUNINE) [Suspect]
     Active Substance: VINFLUNINE DITARTRATE
     Indication: PRODUCT USED FOR UNKNOWN INDICATION
     Dosage: UNK
     Route: 065

REACTIONS (4)
  - Transitional cell carcinoma metastatic [Unknown]
  - Transitional cell carcinoma [Unknown]
  - Lyme disease [Recovered/Resolved with Sequelae]
  - Malignant neoplasm progression [Unknown]
